FAERS Safety Report 6724856-2 (Version None)
Quarter: 2010Q2

REPORT INFORMATION
  Report Type: 
  Country: None (occurrence: None)
  Receive Date: 20100513
  Receipt Date: 20100513
  Transmission Date: 20101027
  Serious: No
  Sender: FDA-Public Use
  Company Number: None

PATIENT
  Sex: Male
  Weight: 115.9 kg

DRUGS (1)
  1. ULTRAM [Suspect]
     Indication: SPINAL COLUMN INJURY
     Dosage: 50 MG TOTAL OF 600 MG A DAY ORAL
     Route: 048

REACTIONS (2)
  - DRUG DEPENDENCE [None]
  - PRODUCT LABEL CONFUSION [None]
